FAERS Safety Report 12632214 (Version 2)
Quarter: 2016Q3

REPORT INFORMATION
  Report Type: Spontaneous
  Country: US (occurrence: US)
  Receive Date: 20160808
  Receipt Date: 20160808
  Transmission Date: 20161109
  Serious: No
  Sender: FDA-Public Use
  Company Number: US-BEH-2016062170

PATIENT
  Sex: Female
  Weight: 72 kg

DRUGS (31)
  1. IPRATROPIUM [Concomitant]
     Active Substance: IPRATROPIUM
  2. ACETAMINOPHEN. [Concomitant]
     Active Substance: ACETAMINOPHEN
  3. ONDANSETRON [Concomitant]
     Active Substance: ONDANSETRON
  4. ALBUTEROL. [Concomitant]
     Active Substance: ALBUTEROL
  5. MIRENA [Concomitant]
     Active Substance: LEVONORGESTREL
  6. DESONIDE. [Concomitant]
     Active Substance: DESONIDE
  7. BENZONATATE. [Concomitant]
     Active Substance: BENZONATATE
  8. QVAR [Concomitant]
     Active Substance: BECLOMETHASONE DIPROPIONATE
  9. VALTREX [Concomitant]
     Active Substance: VALACYCLOVIR HYDROCHLORIDE
  10. DIAZEPAM. [Concomitant]
     Active Substance: DIAZEPAM
  11. VENTOLIN [Concomitant]
     Active Substance: ALBUTEROL SULFATE
  12. VITAMIN D [Concomitant]
     Active Substance: CHOLECALCIFEROL
  13. CLOBETASOL [Concomitant]
     Active Substance: CLOBETASOL
  14. SPIRIVA [Concomitant]
     Active Substance: TIOTROPIUM BROMIDE MONOHYDRATE
  15. HIZENTRA [Suspect]
     Active Substance: HUMAN IMMUNOGLOBULIN G
     Indication: HYPOGAMMAGLOBULINAEMIA
     Route: 058
     Dates: start: 20151005
  16. ADVAIR HFA [Concomitant]
     Active Substance: FLUTICASONE PROPIONATE\SALMETEROL XINAFOATE
  17. KETOCONAZOLE. [Concomitant]
     Active Substance: KETOCONAZOLE
  18. DIPHENHYDRAMINE. [Concomitant]
     Active Substance: DIPHENHYDRAMINE
  19. CALCIUM [Concomitant]
     Active Substance: CALCIUM
  20. ZYTEC [Concomitant]
  21. FUROSEMIDE. [Concomitant]
     Active Substance: FUROSEMIDE
  22. EPIPEN [Concomitant]
     Active Substance: EPINEPHRINE
  23. VALACYCLOVIR [Concomitant]
     Active Substance: VALACYCLOVIR HYDROCHLORIDE
  24. RIZATRIPTAN. [Concomitant]
     Active Substance: RIZATRIPTAN
  25. ACIPHEX [Concomitant]
     Active Substance: RABEPRAZOLE SODIUM
  26. PREDNISONE. [Concomitant]
     Active Substance: PREDNISONE
  27. LIDOCAINE. [Concomitant]
     Active Substance: LIDOCAINE
  28. ACARBOSE. [Concomitant]
     Active Substance: ACARBOSE
  29. VITAMIN C [Concomitant]
     Active Substance: ASCORBIC ACID
  30. NORCO [Concomitant]
     Active Substance: ACETAMINOPHEN\HYDROCODONE BITARTRATE
  31. RABEPRAZOLE [Concomitant]
     Active Substance: RABEPRAZOLE

REACTIONS (2)
  - Rash [Unknown]
  - Erythema [Unknown]
